FAERS Safety Report 4656732-3 (Version None)
Quarter: 2005Q2

REPORT INFORMATION
  Report Type: 
  Country: None (occurrence: None)
  Receive Date: 20050509
  Receipt Date: 20050503
  Transmission Date: 20051028
  Serious: Yes (Death, Life-Threatening, Congenital Anomaly)
  Sender: FDA-Public Use
  Company Number: PHRM2005FR01447

PATIENT
  Age: 0 Day
  Sex: 0
  Weight: 2 kg

DRUGS (1)
  1. NISIS [Suspect]
     Dosage: UNK, UNK
     Route: 064

REACTIONS (7)
  - CONGENITAL PULMONARY HYPERTENSION [None]
  - DRUG EXPOSURE DURING PREGNANCY [None]
  - HYDROPS FOETALIS [None]
  - LIMB MALFORMATION [None]
  - NEONATAL HYPOXIA [None]
  - PREMATURE BABY [None]
  - RENAL FAILURE NEONATAL [None]
